FAERS Safety Report 8794456 (Version 3)
Quarter: 2012Q4

REPORT INFORMATION
  Report Type: 
  Country: FR (occurrence: FR)
  Receive Date: 20120917
  Receipt Date: 20121130
  Transmission Date: 20130627
  Serious: Yes (Disabling, Other)
  Sender: FDA-Public Use
  Company Number: PHHY2012FR079773

PATIENT
  Age: 75 Year
  Sex: Male

DRUGS (7)
  1. TASIGNA [Suspect]
     Indication: CHRONIC MYELOID LEUKAEMIA
     Dosage: UNK
     Dates: start: 2008, end: 201108
  2. TASIGNA [Suspect]
     Dosage: 400 mg, daily
     Dates: start: 20111222, end: 20120418
  3. TILDIEM [Concomitant]
     Indication: HYPERTENSION
     Dosage: 60 mg, BID
     Route: 048
  4. EUCREAS [Concomitant]
     Indication: DIABETES MELLITUS
  5. METHOTREXATE [Concomitant]
  6. DEPO-MEDROL [Concomitant]
  7. CYTARABINE [Concomitant]

REACTIONS (10)
  - Peripheral arterial occlusive disease [Recovered/Resolved with Sequelae]
  - Femoral artery occlusion [Unknown]
  - Vascular insufficiency [Unknown]
  - Necrosis [Unknown]
  - Ischaemia [Recovered/Resolved with Sequelae]
  - Venous thrombosis [Recovered/Resolved with Sequelae]
  - Drug intolerance [Unknown]
  - Aphagia [Unknown]
  - Mouth ulceration [Unknown]
  - Pyrexia [Unknown]
